FAERS Safety Report 9540320 (Version 1)
Quarter: 2013Q3

REPORT INFORMATION
  Report Type: Spontaneous
  Country: ES (occurrence: None)
  Receive Date: 20130917
  Receipt Date: 20130917
  Transmission Date: 20140515
  Serious: Yes (Hospitalization)
  Sender: FDA-Public Use
  Company Number: 2013AP008083

PATIENT
  Sex: Female

DRUGS (4)
  1. ATORVASTATIN [Suspect]
  2. METFORMIN [Suspect]
  3. GLIMEPIRIDE [Suspect]
  4. CANDESARTAN [Suspect]

REACTIONS (6)
  - Lung consolidation [None]
  - Rales [None]
  - Oedema peripheral [None]
  - Pyrexia [None]
  - Sputum purulent [None]
  - Chest pain [None]
